FAERS Safety Report 6271345-8 (Version None)
Quarter: 2009Q3

REPORT INFORMATION
  Report Type: 
  Country: None (occurrence: None)
  Receive Date: 20090716
  Receipt Date: 20090716
  Transmission Date: 20100115
  Serious: Yes (Other)
  Sender: FDA-Public Use
  Company Number: None

PATIENT
  Sex: Male
  Weight: 92.9874 kg

DRUGS (1)
  1. NIASPAN [Suspect]
     Indication: HYPERTRIGLYCERIDAEMIA
     Dosage: 500MG 2 PER NIGHT PO REACTION ON NIGHT OF FIRST DOSE
     Route: 048

REACTIONS (5)
  - BURNING SENSATION [None]
  - DISORIENTATION [None]
  - INCOHERENT [None]
  - PAIN [None]
  - SYNCOPE [None]
